FAERS Safety Report 5021740-X (Version None)
Quarter: 2006Q2

REPORT INFORMATION
  Report Type: 
  Country: None (occurrence: None)
  Receive Date: 20060605
  Receipt Date: 20060523
  Transmission Date: 20061013
  Serious: Yes (Death, Hospitalization)
  Sender: FDA-Public Use
  Company Number: 163-20785-06050755

PATIENT
  Age: 70 Year
  Sex: Male

DRUGS (11)
  1. THALOMID [Suspect]
     Indication: MULTIPLE MYELOMA
     Dosage: 100 MG, DAILY, ORAL
     Route: 048
     Dates: start: 20050906, end: 20060221
  2. PLAVIX [Concomitant]
  3. ASPIRIN [Concomitant]
  4. TOPROL-XL [Concomitant]
  5. NORVASC [Concomitant]
  6. PRILOSEC [Concomitant]
  7. ALTACE [Concomitant]
  8. HYTRIN [Concomitant]
  9. AREDIA [Concomitant]
  10. DECADRON SRC [Concomitant]
  11. IMDUR [Concomitant]

REACTIONS (1)
  - CORONARY ARTERY DISEASE [None]
